FAERS Safety Report 4724089-5 (Version None)
Quarter: 2005Q3

REPORT INFORMATION
  Report Type: 
  Country: None (occurrence: None)
  Receive Date: 20050722
  Receipt Date: 20050712
  Transmission Date: 20060218
  Serious: Yes (Hospitalization)
  Sender: FDA-Public Use
  Company Number: 216094

PATIENT
  Age: 55 Year
  Sex: Female

DRUGS (9)
  1. MABTHERA(RITUXIMAB) CONC FOR SOLUTION FOR INFUSION [Suspect]
     Indication: NON-HODGKIN'S LYMPHOMA
     Dosage: 354 MG, INTRAVENOUS
     Route: 042
     Dates: start: 20041012, end: 20041012
  2. MABTHERA(RITUXIMAB) CONC FOR SOLUTION FOR INFUSION [Suspect]
     Indication: NON-HODGKIN'S LYMPHOMA
     Dosage: 354 MG, INTRAVENOUS
     Route: 042
     Dates: start: 20041019, end: 20041019
  3. ZEVALIN [Suspect]
     Indication: NON-HODGKIN'S LYMPHOMA
     Dosage: 24 MCI, INTRAVENOUS
     Route: 042
     Dates: start: 20041019, end: 20041019
  4. ZEVALIN [Suspect]
     Indication: NON-HODGKIN'S LYMPHOMA
     Dosage: 3.5 MCI, INTRAVENOUS
     Route: 042
     Dates: start: 20041012, end: 20041012
  5. TIMOLOL MALEATE [Concomitant]
  6. XALATAN [Concomitant]
  7. FLUMETHOLON (FLUOROMETHOLONE) [Concomitant]
  8. AMOBAN (ZOPICLONE) [Concomitant]
  9. CHLOR-TRIMETON (CHLORPHENIRAMINE MALEATE) [Concomitant]

REACTIONS (4)
  - LYMPHOCYTE COUNT DECREASED [None]
  - NEUTROPHIL COUNT DECREASED [None]
  - PLATELET COUNT DECREASED [None]
  - WHITE BLOOD CELL COUNT DECREASED [None]
